FAERS Safety Report 7598958-5 (Version None)
Quarter: 2011Q3

REPORT INFORMATION
  Report Type: 
  Country: None (occurrence: None)
  Receive Date: 20110711
  Receipt Date: 20110630
  Transmission Date: 20111222
  Serious: No
  Sender: FDA-Public Use
  Company Number: US-BIOGENIDEC-2011BI024477

PATIENT
  Sex: Female

DRUGS (1)
  1. TYSABRI [Suspect]
     Indication: MULTIPLE SCLEROSIS
     Route: 042
     Dates: start: 20110420

REACTIONS (6)
  - HEADACHE [None]
  - INFUSION SITE RASH [None]
  - MEMORY IMPAIRMENT [None]
  - TREMOR [None]
  - SKIN EXFOLIATION [None]
  - PRURITUS [None]
